FAERS Safety Report 10680324 (Version 2)
Quarter: 2015Q4

REPORT INFORMATION
  Report Type: Spontaneous
  Country: US (occurrence: US)
  Receive Date: 20141229
  Receipt Date: 20151228
  Transmission Date: 20160304
  Serious: Yes (Disabling, Other)
  Sender: FDA-Public Use
  Company Number: US-SA-2013SA132467

PATIENT

DRUGS (5)
  1. PLAVIX [Suspect]
     Active Substance: CLOPIDOGREL BISULFATE
     Indication: ACUTE CORONARY SYNDROME
     Dosage: STANDARD DOSAGE AS PER INSTRUCTOR
     Route: 065
     Dates: start: 20050523, end: 20110610
  2. ASPIRIN. [Concomitant]
     Active Substance: ASPIRIN
  3. PLAVIX [Suspect]
     Active Substance: CLOPIDOGREL BISULFATE
     Indication: CEREBROVASCULAR ACCIDENT
     Dosage: STANDARD DOSAGE AS PER INSTRUCTOR
     Route: 065
     Dates: start: 20050523, end: 20110610
  4. PLAVIX [Suspect]
     Active Substance: CLOPIDOGREL BISULFATE
     Indication: PERIPHERAL ARTERIAL OCCLUSIVE DISEASE
     Dosage: STANDARD DOSAGE AS PER INSTRUCTOR
     Route: 065
     Dates: start: 20050523, end: 20110610
  5. PLAVIX [Suspect]
     Active Substance: CLOPIDOGREL BISULFATE
     Indication: STENT PLACEMENT
     Dosage: STANDARD DOSAGE AS PER INSTRUCTOR
     Route: 065
     Dates: start: 20050523, end: 20110610

REACTIONS (3)
  - Memory impairment [Unknown]
  - Cerebral haemorrhage [Unknown]
  - Gastrointestinal haemorrhage [Unknown]
